FAERS Safety Report 4879446-3 (Version None)
Quarter: 2005Q4

REPORT INFORMATION
  Report Type: 
  Country: None (occurrence: None)
  Receive Date: 20051209
  Receipt Date: 20050607
  Transmission Date: 20060501
  Serious: Yes (Other)
  Sender: FDA-Public Use
  Company Number: USA-2002-0000697

PATIENT
  Age: 70 Year
  Sex: Female
  Weight: 83.9 kg

DRUGS (8)
  1. OXYCONTIN [Suspect]
     Indication: PAIN
     Dosage: 20 MG, Q12H, ORAL
     Route: 048
     Dates: start: 20000829, end: 20001020
  2. CELEBREX [Concomitant]
  3. ALPRAZOLAM [Concomitant]
  4. NEURONTIN [Concomitant]
  5. ACETAMINOPHEN AND HYDROCODONE BITARTRATE [Concomitant]
  6. MOBIC [Concomitant]
  7. SERZONE [Concomitant]
  8. ZANAFLEX [Concomitant]

REACTIONS (13)
  - CONFUSIONAL STATE [None]
  - COUGH [None]
  - DIZZINESS [None]
  - DRUG DEPENDENCE [None]
  - DRUG WITHDRAWAL SYNDROME [None]
  - INADEQUATE ANALGESIA [None]
  - MYALGIA [None]
  - NAUSEA [None]
  - PARAESTHESIA [None]
  - PRURITUS [None]
  - SEDATION [None]
  - TREMOR [None]
  - VOMITING [None]
